FAERS Safety Report 11692571 (Version 2)
Quarter: 2015Q4

REPORT INFORMATION
  Report Type: Spontaneous
  Country: US (occurrence: US)
  Receive Date: 20151103
  Receipt Date: 20151217
  Transmission Date: 20160304
  Serious: Yes (Other)
  Sender: FDA-Public Use
  Company Number: US-PFIZER INC-2015366357

PATIENT
  Age: 50 Year
  Sex: Female
  Weight: 77 kg

DRUGS (12)
  1. PRISTIQ EXTENDED RELEASE [Suspect]
     Active Substance: DESVENLAFAXINE SUCCINATE
     Indication: DEPRESSION
     Dosage: 100 MG, 1X/DAY (ONCE A MORNING)
     Route: 048
  2. PRISTIQ EXTENDED RELEASE [Suspect]
     Active Substance: DESVENLAFAXINE SUCCINATE
     Dosage: 50 MG, 1X/DAY
     Route: 048
     Dates: start: 201510
  3. ABILIFY [Concomitant]
     Active Substance: ARIPIPRAZOLE
     Dosage: 30 MG, 1X/DAY (ONCE AT NIGHT)
     Route: 048
  4. DICLOFENAC SODIUM. [Concomitant]
     Active Substance: DICLOFENAC SODIUM
     Indication: PAIN
     Dosage: 75 MG, 2X/DAY (AS NEEDED)
     Route: 048
  5. METHOCARBAMOL. [Concomitant]
     Active Substance: METHOCARBAMOL
     Indication: MUSCLE SPASMS
     Dosage: 750 MG, 4X/DAY (AS NEEDED)
     Route: 048
  6. CLOZAPINE. [Concomitant]
     Active Substance: CLOZAPINE
     Indication: SCHIZOAFFECTIVE DISORDER
     Dosage: 100 MG, 3X/DAY (THREE AT NIGHT)
     Route: 048
  7. MORPHINE SULFATE. [Concomitant]
     Active Substance: MORPHINE SULFATE
     Indication: PAIN
     Dosage: 15 MG, 3X/DAY (AS NEEDED)
     Route: 048
  8. QUETIAPINE FUMARATE. [Concomitant]
     Active Substance: QUETIAPINE FUMARATE
     Indication: SCHIZOAFFECTIVE DISORDER
     Dosage: 200 MG, 1X/DAY (ONCE AT NIGHT)
     Route: 048
  9. OXYMORPHONE HCL ER [Concomitant]
     Indication: PAIN
     Dosage: 15 MG, 2X/DAY (ONE EVERY 12 HOURS AS NEEDED)
     Route: 048
  10. OXCARBAZEPINE. [Concomitant]
     Active Substance: OXCARBAZEPINE
     Indication: MOOD ALTERED
     Dosage: 600 MG, 2X/DAY
     Route: 048
  11. ONDANSETRON [Concomitant]
     Active Substance: ONDANSETRON
     Indication: NAUSEA
     Dosage: 4 MG, 2X/DAY (AS NEEDED)
     Route: 048
  12. CLONAZEPAM. [Concomitant]
     Active Substance: CLONAZEPAM
     Indication: ANXIETY
     Dosage: 1 MG, 2X/DAY
     Route: 048

REACTIONS (12)
  - Diarrhoea [Unknown]
  - Blood sodium decreased [Not Recovered/Not Resolved]
  - Nausea [Unknown]
  - Headache [Unknown]
  - Irritability [Unknown]
  - Anxiety [Unknown]
  - Intentional product misuse [Not Recovered/Not Resolved]
  - Fatigue [Unknown]
  - Hyperhidrosis [Unknown]
  - Dizziness [Unknown]
  - Insomnia [Unknown]
  - Abnormal dreams [Unknown]

NARRATIVE: CASE EVENT DATE: 201510
